FAERS Safety Report 19440933 (Version 2)
Quarter: 2021Q3

REPORT INFORMATION
  Report Type: Spontaneous
  Country: GB (occurrence: GB)
  Receive Date: 20210621
  Receipt Date: 20210708
  Transmission Date: 20211014
  Serious: Yes (Other)
  Sender: FDA-Public Use
  Company Number: GB-CIPLA (EU) LIMITED-2021GB04196

PATIENT

DRUGS (83)
  1. PHYTOMENADIONE [Suspect]
     Active Substance: PHYTONADIONE
     Indication: ILL-DEFINED DISORDER
     Dosage: UNK
     Route: 065
     Dates: start: 2006
  2. POTASSIUM CHLORIDE. [Suspect]
     Active Substance: POTASSIUM CHLORIDE
     Dosage: UNK
     Route: 065
  3. ASPIRIN [ACETYLSALICYLIC ACID] [Concomitant]
     Active Substance: ASPIRIN
     Indication: PRODUCT USED FOR UNKNOWN INDICATION
     Dosage: UNK
     Route: 065
  4. VANCOMYCIN [Concomitant]
     Active Substance: VANCOMYCIN
     Indication: PRODUCT USED FOR UNKNOWN INDICATION
     Dosage: UNK
     Route: 065
  5. ALFENTANIL. [Suspect]
     Active Substance: ALFENTANIL
     Indication: ILL-DEFINED DISORDER
     Dosage: UNK
     Route: 065
  6. CITRIC ACID ANHYDROUS [Suspect]
     Active Substance: ANHYDROUS CITRIC ACID
     Indication: PNEUMONIA
     Dosage: UNK
     Route: 065
  7. CLEXANE [Suspect]
     Active Substance: ENOXAPARIN SODIUM
     Indication: PNEUMONIA
     Dosage: UNK
     Route: 065
  8. NORADRENALINE (NORPINEPHRINE) [Suspect]
     Active Substance: NOREPINEPHRINE
     Indication: ILL-DEFINED DISORDER
  9. PIRITON [Suspect]
     Active Substance: CHLORPHENIRAMINE MALEATE
     Indication: PNEUMONIA
     Dosage: UNK
     Route: 065
  10. SODIUM BICARBONATE. [Suspect]
     Active Substance: SODIUM BICARBONATE
     Indication: ILL-DEFINED DISORDER
     Dosage: 100 MILLIGRAM, QH
     Route: 042
     Dates: start: 2006
  11. SODIUM BICARBONATE. [Suspect]
     Active Substance: SODIUM BICARBONATE
     Indication: PNEUMONIA
     Dosage: UNK
     Route: 042
     Dates: start: 2006
  12. TINZAPARIN [Suspect]
     Active Substance: TINZAPARIN
     Indication: ILL-DEFINED DISORDER
     Dosage: 3500 MICROGRAM, QD
     Route: 065
  13. TINZAPARIN [Suspect]
     Active Substance: TINZAPARIN
     Indication: PNEUMONIA
     Dosage: UNK
     Route: 065
  14. METOCLOPRAMIDE. [Concomitant]
     Active Substance: METOCLOPRAMIDE
     Indication: PRODUCT USED FOR UNKNOWN INDICATION
     Dosage: UNK
     Route: 065
  15. ZOPICLONE [Concomitant]
     Active Substance: ZOPICLONE
     Indication: PRODUCT USED FOR UNKNOWN INDICATION
     Dosage: UNK
     Route: 065
  16. PARACETAMOL [Suspect]
     Active Substance: ACETAMINOPHEN
     Indication: PNEUMONIA
     Dosage: UNK
     Route: 065
  17. SALBUTAMOL [Suspect]
     Active Substance: ALBUTEROL
     Indication: ILL-DEFINED DISORDER
     Dosage: 1 DOSAGE FORM, UNK
     Route: 065
     Dates: start: 2006
  18. HUMAN ACTRAPID [Suspect]
     Active Substance: INSULIN HUMAN
     Indication: TOXIC EPIDERMAL NECROLYSIS
     Dosage: UNK
     Route: 065
     Dates: start: 2006
  19. ALFENTANIL. [Suspect]
     Active Substance: ALFENTANIL
     Indication: PNEUMONIA
     Dosage: UNK
     Route: 042
     Dates: start: 2006
  20. AQUASEPT [Suspect]
     Active Substance: TRICLOSAN
     Indication: PNEUMONIA
     Dosage: UNK
     Route: 065
  21. FLUCONAZOLE. [Suspect]
     Active Substance: FLUCONAZOLE
     Indication: ILL-DEFINED DISORDER
     Dosage: 200 MILLIGRAM, QD
     Route: 042
     Dates: start: 2006
  22. FRAGMIN [Suspect]
     Active Substance: DALTEPARIN SODIUM
     Indication: PNEUMONIA
     Dosage: UNK
     Route: 065
  23. HEPARIN SODIUM. [Suspect]
     Active Substance: HEPARIN SODIUM
     Indication: PRODUCT USED FOR UNKNOWN INDICATION
     Dosage: 3500 MICROGRAM, UNK
     Route: 065
  24. LACTULOSE. [Suspect]
     Active Substance: LACTULOSE
     Indication: ILL-DEFINED DISORDER
     Dosage: 10 MILLILITER, UNK
     Route: 065
     Dates: start: 2006
  25. NORADRENALINE (NORPINEPHRINE) [Suspect]
     Active Substance: NOREPINEPHRINE
     Indication: PNEUMONIA
     Dosage: UNK
     Route: 065
  26. PROPOFOL. [Suspect]
     Active Substance: PROPOFOL
     Indication: PNEUMONIA
     Dosage: UNK
     Route: 042
  27. SIMVASTATIN. [Suspect]
     Active Substance: SIMVASTATIN
     Indication: ILL-DEFINED DISORDER
     Dosage: 40 MILLIGRAM, QD
     Route: 042
     Dates: start: 2006
  28. THIAMIN [THIAMINE] [Suspect]
     Active Substance: THIAMINE
     Indication: PNEUMONIA
     Dosage: UNK
     Route: 065
  29. VITAMIN B NOS [Suspect]
     Active Substance: VITAMIN B
     Indication: ILL-DEFINED DISORDER
     Dosage: UNK
     Route: 065
  30. CO?AMOXICLAV [AMOXICILLIN;CLAVULANATE POTASSIUM] [Concomitant]
     Active Substance: AMOXICILLIN\CLAVULANATE POTASSIUM
     Indication: PRODUCT USED FOR UNKNOWN INDICATION
     Dosage: UNK
     Route: 065
  31. PANTOPRAZOLE [Concomitant]
     Active Substance: PANTOPRAZOLE
     Indication: PRODUCT USED FOR UNKNOWN INDICATION
     Dosage: UNK
     Route: 065
  32. AMOXICILLIN. [Suspect]
     Active Substance: AMOXICILLIN
     Indication: PNEUMONIA
     Dosage: 250 MILLIGRAM, QD
     Route: 048
     Dates: start: 20060913
  33. BACTROBAN [Suspect]
     Active Substance: MUPIROCIN\MUPIROCIN CALCIUM
     Indication: ILL-DEFINED DISORDER
     Dosage: UNK
     Route: 065
     Dates: start: 2006
  34. DOBUTAMINE [Suspect]
     Active Substance: DOBUTAMINE HYDROCHLORIDE
     Indication: ILL-DEFINED DISORDER
     Dosage: UNK
     Route: 065
     Dates: start: 2006
  35. DOBUTAMINE [Suspect]
     Active Substance: DOBUTAMINE HYDROCHLORIDE
     Indication: PNEUMONIA
     Dosage: UNK
     Route: 065
  36. FLUCONAZOLE. [Suspect]
     Active Substance: FLUCONAZOLE
     Indication: PNEUMONIA
     Dosage: UNK
     Route: 065
  37. LACTULOSE. [Suspect]
     Active Substance: LACTULOSE
     Indication: PNEUMONIA
     Dosage: UNK
     Route: 065
  38. LANSOPRAZOLE. [Suspect]
     Active Substance: LANSOPRAZOLE
     Indication: ILL-DEFINED DISORDER
     Dosage: 30 MILLIGRAM, QD
     Route: 065
     Dates: start: 2006
  39. MAGNESIUM SULFATE. [Suspect]
     Active Substance: MAGNESIUM SULFATE
     Indication: ILL-DEFINED DISORDER
     Dosage: 10ML/50%8MMOLS/50 MLS, UNK
     Route: 065
     Dates: start: 2006
  40. OMEPRAZOLE. [Suspect]
     Active Substance: OMEPRAZOLE
     Indication: PNEUMONIA
     Dosage: UNK
     Route: 065
  41. PIRITON [Suspect]
     Active Substance: CHLORPHENIRAMINE MALEATE
     Indication: ILL-DEFINED DISORDER
  42. PROPOFOL. [Suspect]
     Active Substance: PROPOFOL
     Indication: ILL-DEFINED DISORDER
     Dosage: UNK
     Route: 042
     Dates: start: 2006
  43. ROCEPHIN [Suspect]
     Active Substance: CEFTRIAXONE SODIUM
     Indication: ILL-DEFINED DISORDER
     Dosage: 2 GRAM, UNK
     Route: 042
     Dates: start: 2006
  44. SILVER SULPHADIAZINE [Suspect]
     Active Substance: SILVER SULFADIAZINE
     Indication: ILL-DEFINED DISORDER
     Dosage: UNK
     Route: 065
     Dates: start: 2006
  45. CALCIUM GLUCONATE. [Suspect]
     Active Substance: CALCIUM GLUCONATE
     Indication: PNEUMONIA
     Dosage: UNK
     Route: 065
  46. FRAGMIN [Suspect]
     Active Substance: DALTEPARIN SODIUM
     Indication: ILL-DEFINED DISORDER
     Dosage: 2500 INTERNATIONAL UNIT, QD
     Route: 058
  47. MAGNESIUM SULFATE. [Suspect]
     Active Substance: MAGNESIUM SULFATE
     Indication: PNEUMONIA
     Dosage: UNK
     Route: 065
  48. PHYTOMENADIONE [Suspect]
     Active Substance: PHYTONADIONE
     Indication: PNEUMONIA
     Dosage: UNK
     Route: 065
  49. POTASSIUM CHLORIDE. [Suspect]
     Active Substance: POTASSIUM CHLORIDE
     Indication: PNEUMONIA
     Dosage: UNK
     Route: 065
     Dates: start: 2006
  50. SIMVASTATIN. [Suspect]
     Active Substance: SIMVASTATIN
     Indication: PNEUMONIA
  51. SODIUM CHLORIDE. [Suspect]
     Active Substance: SODIUM CHLORIDE
     Indication: ILL-DEFINED DISORDER
     Dosage: 1 PERCENT, QD
     Route: 065
     Dates: start: 2006
  52. SALBUTAMOL [Suspect]
     Active Substance: ALBUTEROL
     Indication: PNEUMONIA
     Dosage: UNK
     Route: 065
  53. CITRIC ACID ANHYDROUS [Suspect]
     Active Substance: ANHYDROUS CITRIC ACID
     Indication: ILL-DEFINED DISORDER
     Dosage: 100 MILLIGRAM, QD
     Route: 065
     Dates: start: 2006
  54. CALCIUM GLUCONATE. [Suspect]
     Active Substance: CALCIUM GLUCONATE
     Indication: ILL-DEFINED DISORDER
     Dosage: 10 MILLILITER, UNK
     Route: 042
     Dates: start: 2006
  55. CHLORPHENAMINE [Suspect]
     Active Substance: CHLORPHENIRAMINE MALEATE
     Indication: PNEUMONIA
     Dosage: 40 MILLIGRAM, QD
     Route: 065
     Dates: start: 2006
  56. LORAZEPAM. [Suspect]
     Active Substance: LORAZEPAM
     Indication: PNEUMONIA
     Dosage: UNK
     Route: 065
  57. POTASSIUM CANRENOATE [Suspect]
     Active Substance: CANRENOATE POTASSIUM
     Indication: ILL-DEFINED DISORDER
     Dosage: UNK
     Route: 065
  58. POTASSIUM [Suspect]
     Active Substance: POTASSIUM
     Indication: ILL-DEFINED DISORDER
     Dosage: UNK
     Route: 065
  59. SILVER SULPHADIAZINE [Suspect]
     Active Substance: SILVER SULFADIAZINE
     Indication: PNEUMONIA
     Dosage: UNK
     Route: 065
  60. SODIUM CHLORIDE. [Suspect]
     Active Substance: SODIUM CHLORIDE
     Indication: PNEUMONIA
     Dosage: UNK
     Route: 065
  61. CIPROFLOXACIN. [Concomitant]
     Active Substance: CIPROFLOXACIN
     Indication: PRODUCT USED FOR UNKNOWN INDICATION
     Dosage: UNK
     Route: 065
  62. PARACETAMOL [Suspect]
     Active Substance: ACETAMINOPHEN
     Indication: ILL-DEFINED DISORDER
     Dosage: UNK
     Route: 065
     Dates: start: 2006
  63. HUMAN ACTRAPID [Suspect]
     Active Substance: INSULIN HUMAN
     Indication: DIABETES MELLITUS
     Dosage: 50 UNITS/50ML, UNK
     Route: 042
     Dates: start: 2006
  64. HUMAN ACTRAPID [Suspect]
     Active Substance: INSULIN HUMAN
     Indication: PNEUMONIA
  65. AQUASEPT [Suspect]
     Active Substance: TRICLOSAN
     Indication: ILL-DEFINED DISORDER
     Dosage: UNK
     Route: 065
     Dates: start: 2006
  66. FUROSEMIDE. [Suspect]
     Active Substance: FUROSEMIDE
     Indication: PNEUMONIA
     Dosage: 40 MILLIGRAM, QD (IV 20 MG TWICE A DAY)
     Route: 042
     Dates: start: 2006
  67. FUROSEMIDE. [Suspect]
     Active Substance: FUROSEMIDE
     Indication: ILL-DEFINED DISORDER
     Dosage: 20 MILLIGRAM, QD
     Route: 048
     Dates: start: 2006
  68. OMEPRAZOLE. [Suspect]
     Active Substance: OMEPRAZOLE
     Indication: ILL-DEFINED DISORDER
     Dosage: UNK
     Route: 042
  69. POTASSIUM CHLORIDE. [Suspect]
     Active Substance: POTASSIUM CHLORIDE
     Indication: ILL-DEFINED DISORDER
     Dosage: 6 DOSAGE FORM, UNK
     Route: 065
     Dates: start: 2006
  70. ROCEPHIN [Suspect]
     Active Substance: CEFTRIAXONE SODIUM
     Indication: PNEUMONIA
     Dosage: UNK
     Route: 042
  71. THIAMIN [THIAMINE] [Suspect]
     Active Substance: THIAMINE
     Indication: ILL-DEFINED DISORDER
     Dosage: 100 MILLIGRAM, QD
     Route: 065
  72. TAZOCIN [Concomitant]
     Active Substance: PIPERACILLIN SODIUM\TAZOBACTAM SODIUM
     Indication: PRODUCT USED FOR UNKNOWN INDICATION
     Dosage: UNK
     Route: 065
  73. AMOXICILLIN. [Suspect]
     Active Substance: AMOXICILLIN
     Indication: ILL-DEFINED DISORDER
     Dosage: 1 GRAM, TID
     Route: 042
     Dates: start: 20060913
  74. BACTROBAN [Suspect]
     Active Substance: MUPIROCIN\MUPIROCIN CALCIUM
     Indication: PNEUMONIA
  75. CALCIUM CHLORIDE. [Suspect]
     Active Substance: CALCIUM CHLORIDE
     Indication: ILL-DEFINED DISORDER
     Dosage: UNK
     Route: 065
     Dates: start: 2006
  76. CALCIUM CHLORIDE. [Suspect]
     Active Substance: CALCIUM CHLORIDE
     Indication: PNEUMONIA
     Dosage: UNK
     Route: 065
  77. CLEXANE [Suspect]
     Active Substance: ENOXAPARIN SODIUM
     Indication: ILL-DEFINED DISORDER
     Dosage: 20 MILLIGRAM, QD
     Route: 065
     Dates: start: 2006
  78. HEPARIN CALCIUM [Suspect]
     Active Substance: HEPARIN CALCIUM
     Indication: ILL-DEFINED DISORDER
     Dosage: UNK
     Route: 065
     Dates: start: 2006
  79. HYDROCORTISONE. [Suspect]
     Active Substance: HYDROCORTISONE
     Indication: ILL-DEFINED DISORDER
     Dosage: 100 MILLIGRAM, QD
     Route: 042
     Dates: start: 2006
  80. LORAZEPAM. [Suspect]
     Active Substance: LORAZEPAM
     Indication: ILL-DEFINED DISORDER
     Dosage: 1?2 MILLIGRAM ONCE ONLY, QD
     Route: 065
     Dates: start: 2006
  81. ATROVENT [Concomitant]
     Active Substance: IPRATROPIUM BROMIDE
     Indication: PRODUCT USED FOR UNKNOWN INDICATION
     Dosage: UNK
     Route: 065
  82. ERYTHROMYCIN. [Concomitant]
     Active Substance: ERYTHROMYCIN
     Indication: PRODUCT USED FOR UNKNOWN INDICATION
     Dosage: UNK
     Route: 065
  83. MIDODRINE [Concomitant]
     Active Substance: MIDODRINE
     Indication: PRODUCT USED FOR UNKNOWN INDICATION
     Dosage: UNK
     Route: 065

REACTIONS (2)
  - Toxic epidermal necrolysis [Unknown]
  - Off label use [Unknown]

NARRATIVE: CASE EVENT DATE: 2006
